FAERS Safety Report 24151678 (Version 1)
Quarter: 2024Q3

REPORT INFORMATION
  Report Type: Spontaneous
  Country: US (occurrence: US)
  Receive Date: 20240730
  Receipt Date: 20240730
  Transmission Date: 20241016
  Serious: No
  Sender: PERRIGO
  Company Number: US-PERRIGO-24US004302

PATIENT
  Age: 74 Year
  Sex: Female
  Weight: 66.667 kg

DRUGS (4)
  1. LORATADINE [Suspect]
     Active Substance: LORATADINE
     Indication: Rhinorrhoea
     Dosage: 10 MG, PRN
     Route: 048
     Dates: start: 2023, end: 20240430
  2. LORATADINE [Suspect]
     Active Substance: LORATADINE
     Indication: Eye pruritus
  3. LORATADINE [Suspect]
     Active Substance: LORATADINE
     Indication: Sneezing
  4. LORATADINE [Suspect]
     Active Substance: LORATADINE
     Indication: Hypersensitivity

REACTIONS (1)
  - Expired product administered [Unknown]

NARRATIVE: CASE EVENT DATE: 20240429
